FAERS Safety Report 6544151-4 (Version None)
Quarter: 2010Q1

REPORT INFORMATION
  Report Type: 
  Country: None (occurrence: None)
  Receive Date: 20100119
  Receipt Date: 20100119
  Transmission Date: 20100710
  Serious: Yes (Other)
  Sender: FDA-Public Use
  Company Number: None

PATIENT
  Age: 11 Year
  Sex: Female
  Weight: 63 kg

DRUGS (2)
  1. MOTRIN [Suspect]
     Indication: ABDOMINAL PAIN UPPER
     Dosage: 250MG 6-8 HRS PO
     Route: 048
     Dates: start: 20100104, end: 20100114
  2. MOTRIN [Suspect]
     Indication: PAIN IN EXTREMITY
     Dosage: 250MG 6-8 HRS PO
     Route: 048
     Dates: start: 20100104, end: 20100114

REACTIONS (4)
  - ABDOMINAL PAIN UPPER [None]
  - CRYING [None]
  - FEELING ABNORMAL [None]
  - PRODUCT QUALITY ISSUE [None]
